FAERS Safety Report 12653477 (Version 2)
Quarter: 2017Q1

REPORT INFORMATION
  Report Type: Report from Study
  Country: IE (occurrence: IE)
  Receive Date: 20160815
  Receipt Date: 20170310
  Transmission Date: 20170428
  Serious: Yes (Death)
  Sender: FDA-Public Use
  Company Number: IE-009507513-1608IRL004917

PATIENT
  Age: 57 Year
  Sex: Male
  Weight: 103 kg

DRUGS (4)
  1. ONDANSETRON HYDROCHLORIDE. [Concomitant]
     Active Substance: ONDANSETRON HYDROCHLORIDE
     Indication: PROPHYLAXIS OF NAUSEA AND VOMITING
     Dosage: 8 MG, QD
     Route: 048
     Dates: start: 20160518
  2. SENOKOT (SENNOSIDES) [Concomitant]
     Indication: CONSTIPATION
     Dosage: 17.2 MG, QD
     Route: 048
     Dates: start: 20160527, end: 20160712
  3. TEMOZOLOMIDE. [Suspect]
     Active Substance: TEMOZOLOMIDE
     Indication: GLIOBLASTOMA MULTIFORME
     Dosage: 75 MG/M2, DAY 1 TO DAY 5 OF 28-DAY CYCLE X 6 CYCLES
     Route: 048
     Dates: start: 20160518, end: 20160622
  4. SEPTRIN [Concomitant]
     Active Substance: SULFAMETHOXAZOLE\TRIMETHOPRIM
     Indication: PRODUCT USED FOR UNKNOWN INDICATION
     Dosage: 480 MG, QD
     Dates: start: 20160518, end: 20160629

REACTIONS (1)
  - Ventricular arrhythmia [Fatal]

NARRATIVE: CASE EVENT DATE: 20160718
